FAERS Safety Report 7365517-9 (Version None)
Quarter: 2011Q1

REPORT INFORMATION
  Report Type: 
  Country: None (occurrence: None)
  Receive Date: 20110322
  Receipt Date: 20080820
  Transmission Date: 20110831
  Serious: Yes (Death, Other)
  Sender: FDA-Public Use
  Company Number: US-BAYER-200839743NA

PATIENT
  Sex: Female
  Weight: 64 kg

DRUGS (10)
  1. RED BLOOD CELLS [Concomitant]
     Dosage: 3 UNITS
     Dates: start: 20040707
  2. INSULIN [Concomitant]
     Dosage: UNK
     Route: 042
     Dates: start: 20040707
  3. VERAPAMIL [Concomitant]
     Dosage: UNK
  4. TRASYLOL [Suspect]
     Indication: CORONARY ARTERY BYPASS
     Dosage: 200 ML CARDIOPULMONARY BYPASS
     Route: 042
     Dates: start: 20040707, end: 20040707
  5. MEVACOR [Concomitant]
  6. ALBUTEROL [Concomitant]
  7. ASPIRIN [Concomitant]
  8. OXILAN-300 [Concomitant]
     Indication: CATHETERISATION CARDIAC
     Dosage: UNK
     Dates: start: 20040706
  9. NITROGLYCERIN [Concomitant]
     Dosage: UNK
     Route: 042
     Dates: start: 20040707
  10. MAXZIDE [Concomitant]

REACTIONS (7)
  - RENAL FAILURE [None]
  - INJURY [None]
  - UNEVALUABLE EVENT [None]
  - ANHEDONIA [None]
  - ENCEPHALOPATHY [None]
  - PAIN [None]
  - DEATH [None]
